FAERS Safety Report 11820935 (Version 1)
Quarter: 2015Q4

REPORT INFORMATION
  Report Type: Spontaneous
  Country: US (occurrence: US)
  Receive Date: 20151210
  Receipt Date: 20151210
  Transmission Date: 20160305
  Serious: Yes (Other)
  Sender: FDA-Public Use
  Company Number: US-JNJFOC-20150721881

PATIENT
  Age: 71 Year
  Sex: Male

DRUGS (9)
  1. ^VITAMINS^ (NOS) [Concomitant]
  2. ACYCLOVIR. [Concomitant]
     Active Substance: ACYCLOVIR
  3. FLOMAX [Concomitant]
     Active Substance: TAMSULOSIN HYDROCHLORIDE
  4. MINERALS NOS [Concomitant]
     Active Substance: MINERALS
  5. ASPIRIN. [Concomitant]
     Active Substance: ASPIRIN
  6. IMBRUVICA [Suspect]
     Active Substance: IBRUTINIB
     Indication: MANTLE CELL LYMPHOMA
     Route: 048
     Dates: start: 20140124
  7. LOSARTAN. [Concomitant]
     Active Substance: LOSARTAN
  8. SINGULAIR [Concomitant]
     Active Substance: MONTELUKAST SODIUM
  9. FOLIC ACID. [Concomitant]
     Active Substance: FOLIC ACID

REACTIONS (3)
  - Prostate cancer recurrent [Unknown]
  - Lymphoma [Unknown]
  - Dyspnoea [Unknown]

NARRATIVE: CASE EVENT DATE: 20150713
